FAERS Safety Report 9608958 (Version 4)
Quarter: 2014Q1

REPORT INFORMATION
  Report Type: Spontaneous
  Country: CA (occurrence: CA)
  Receive Date: 20131009
  Receipt Date: 20140131
  Transmission Date: 20141002
  Serious: Yes (Other)
  Sender: FDA-Public Use
  Company Number: CA-PFIZER INC-2013284898

PATIENT
  Age: 64 Year
  Sex: Male
  Weight: 90 kg

DRUGS (11)
  1. XALKORI [Suspect]
     Indication: NON-SMALL CELL LUNG CANCER METASTATIC
     Dosage: 250 MG, 2X/DAY (EVERY 12 HOURS)
     Dates: start: 20130919
  2. CLOPIDOGREL [Concomitant]
     Indication: ANTICOAGULANT THERAPY
     Dosage: 75 MG, 1X/DAY
     Dates: start: 20130329
  3. ASAPHEN EC [Concomitant]
     Indication: ANTICOAGULANT THERAPY
     Dosage: 80 MG, 1X/DAY
     Dates: start: 20130329
  4. APO-ATORVASTATIN [Concomitant]
     Indication: BLOOD CHOLESTEROL INCREASED
     Dosage: 80 MG, 1X/DAY AT BEDTIME
     Dates: start: 20130329
  5. PANTOPRAZOLE [Concomitant]
     Indication: GASTROOESOPHAGEAL REFLUX DISEASE
     Dosage: 40 MG, 1X/DAY
     Dates: start: 20100924
  6. RAMIPRIL [Concomitant]
     Indication: HYPERTENSION
     Dosage: 2.5 MG, 1X/DAY
     Dates: start: 20130329
  7. BISOPROLOL [Concomitant]
     Indication: HYPERTENSION
     Dosage: 5 MG, 1X/DAY
     Dates: start: 20130329
  8. CODEINE [Concomitant]
     Dosage: UNK
  9. SENOKOT [Concomitant]
     Dosage: UNK
  10. LAXADAY [Concomitant]
     Dosage: UNK
  11. COLACE [Concomitant]
     Dosage: UNK

REACTIONS (5)
  - Hallucination [Recovered/Resolved]
  - Insomnia [Recovered/Resolved]
  - Visual impairment [Recovered/Resolved]
  - Disease progression [Not Recovered/Not Resolved]
  - Non-small cell lung cancer metastatic [Not Recovered/Not Resolved]
